FAERS Safety Report 11936175 (Version 5)
Quarter: 2016Q2

REPORT INFORMATION
  Report Type: Report from Study
  Country: US (occurrence: US)
  Receive Date: 20160121
  Receipt Date: 20160616
  Transmission Date: 20160815
  Serious: Yes (Hospitalization, Other)
  Sender: FDA-Public Use
  Company Number: US-AMGEN-USASL2015140825

PATIENT
  Age: 63 Year
  Sex: Male

DRUGS (8)
  1. DEXAMETHASONE. [Concomitant]
     Active Substance: DEXAMETHASONE
     Dosage: 40 MG, UNK
  2. KYPROLIS [Suspect]
     Active Substance: CARFILZOMIB
     Dosage: UNK, ONCE MONTH
     Route: 065
  3. AREDIA [Concomitant]
     Active Substance: PAMIDRONATE DISODIUM
     Dosage: UNK
  4. REVLIMID [Concomitant]
     Active Substance: LENALIDOMIDE
     Indication: PLASMA CELL MYELOMA
     Dosage: UNK
     Dates: start: 201511
  5. VITAMIN D [Concomitant]
     Active Substance: CHOLECALCIFEROL
     Dosage: 50000 UNK, QWK
  6. KYPROLIS [Suspect]
     Active Substance: CARFILZOMIB
     Indication: PLASMA CELL MYELOMA
     Dosage: UNK
     Route: 065
     Dates: start: 201511, end: 20160105
  7. KYPROLIS [Suspect]
     Active Substance: CARFILZOMIB
     Dosage: UNK, 2 TIMES/WK, FOR THREE WEEKS
     Route: 065
     Dates: start: 20160610
  8. LENALIDOMIDE [Suspect]
     Active Substance: LENALIDOMIDE
     Indication: PRODUCT USED FOR UNKNOWN INDICATION
     Dosage: UNK, THREE WEEKS
     Route: 065

REACTIONS (20)
  - White blood cell count decreased [Unknown]
  - Asthenia [Unknown]
  - Plasma cell myeloma [Unknown]
  - Tremor [Unknown]
  - Fatigue [Recovered/Resolved]
  - Constipation [Unknown]
  - Diarrhoea [Unknown]
  - Cough [Unknown]
  - Red blood cell count decreased [Not Recovered/Not Resolved]
  - Platelet count decreased [Unknown]
  - Pneumonia [Unknown]
  - Laboratory test abnormal [Not Recovered/Not Resolved]
  - Dyspnoea [Recovering/Resolving]
  - Back pain [Recovering/Resolving]
  - Haemoglobin decreased [Recovering/Resolving]
  - Presyncope [Unknown]
  - Musculoskeletal stiffness [Unknown]
  - Inappropriate schedule of drug administration [Unknown]
  - Vibratory sense increased [Unknown]
  - Nausea [Recovered/Resolved]

NARRATIVE: CASE EVENT DATE: 201603
